FAERS Safety Report 6548761-X (Version None)
Quarter: 2010Q1

REPORT INFORMATION
  Report Type: 
  Country: None (occurrence: None)
  Receive Date: 20100124
  Receipt Date: 20091118
  Transmission Date: 20100710
  Serious: No
  Sender: FDA-Public Use
  Company Number: US-ALLERGAN-0915647US

PATIENT
  Age: 89 Year
  Sex: Male

DRUGS (2)
  1. RESTASIS [Suspect]
     Indication: DRY EYE
     Dosage: 1 GTT, Q12H
     Route: 047
     Dates: start: 20090820
  2. OPTIVE [Concomitant]
     Indication: DRY EYE

REACTIONS (2)
  - LACRIMATION INCREASED [None]
  - PARANASAL SINUS HYPERSECRETION [None]
